FAERS Safety Report 5302112-7 (Version None)
Quarter: 2007Q2

REPORT INFORMATION
  Report Type: 
  Country: None (occurrence: None)
  Receive Date: 20070419
  Receipt Date: 20070412
  Transmission Date: 20071010
  Serious: Yes (Hospitalization)
  Sender: FDA-Public Use
  Company Number: FR-GLAXOSMITHKLINE-B0466397A

PATIENT
  Age: 77 Year
  Sex: Female

DRUGS (8)
  1. AUGMENTIN '125' [Suspect]
     Dosage: 4G PER DAY
     Route: 048
     Dates: start: 20070316, end: 20070319
  2. LEVOCETIRIZINE [Suspect]
     Dosage: 1UNIT PER DAY
     Route: 048
     Dates: start: 20070316, end: 20070319
  3. DIGOXIN [Concomitant]
  4. BUFLOMEDIL [Concomitant]
  5. FUROSEMIDE [Concomitant]
  6. PREVISCAN [Concomitant]
  7. CARDENSIEL [Concomitant]
  8. PERINDOPRIL ERBUMINE [Concomitant]

REACTIONS (5)
  - ERYTHEMA [None]
  - EYE OEDEMA [None]
  - PURPURA [None]
  - RASH MACULAR [None]
  - TOXIC SKIN ERUPTION [None]
